FAERS Safety Report 11104904 (Version 2)
Quarter: 2015Q3

REPORT INFORMATION
  Report Type: Report from Study
  Country: CA (occurrence: CA)
  Receive Date: 20150511
  Receipt Date: 20150702
  Transmission Date: 20151125
  Serious: Yes (Other)
  Sender: FDA-Public Use
  Company Number: CA-SA-2014SA164256

PATIENT
  Age: 32 Year
  Sex: Male
  Weight: 114 kg

DRUGS (6)
  1. AUBAGIO [Suspect]
     Active Substance: TERIFLUNOMIDE
     Indication: RELAPSING-REMITTING MULTIPLE SCLEROSIS
     Route: 048
     Dates: start: 20140822
  2. ASA [Concomitant]
     Active Substance: ASPIRIN
     Indication: PROPHYLAXIS
     Dosage: STRENGTH: 81 MG
     Route: 048
     Dates: start: 201503
  3. AUBAGIO [Suspect]
     Active Substance: TERIFLUNOMIDE
     Indication: RELAPSING-REMITTING MULTIPLE SCLEROSIS
     Route: 048
     Dates: start: 20140822
  4. ZOPICLONE [Concomitant]
     Active Substance: ZOPICLONE
     Indication: INSOMNIA
  5. AMLODIPINE [Concomitant]
     Active Substance: AMLODIPINE BESYLATE
     Indication: HYPERTENSION
     Route: 048
     Dates: start: 2000
  6. COVERSYL [Concomitant]
     Active Substance: PERINDOPRIL
     Indication: HYPERTENSION
     Dosage: STRENGTH: 4 MG
     Route: 048
     Dates: start: 201503

REACTIONS (11)
  - Blood glucose increased [Unknown]
  - Cubital tunnel syndrome [Unknown]
  - Multiple sclerosis relapse [Not Recovered/Not Resolved]
  - Blood cholesterol increased [Recovering/Resolving]
  - Cognitive disorder [Recovering/Resolving]
  - Paraesthesia [Recovering/Resolving]
  - Headache [Recovered/Resolved]
  - Carpal tunnel syndrome [Unknown]
  - Diabetes mellitus [Recovering/Resolving]
  - Alopecia [Recovered/Resolved]
  - Nuclear magnetic resonance imaging abnormal [Unknown]

NARRATIVE: CASE EVENT DATE: 201408
